FAERS Safety Report 8975333 (Version 2)
Quarter: 2013Q1

REPORT INFORMATION
  Report Type: Spontaneous
  Country: US (occurrence: US)
  Receive Date: 20121219
  Receipt Date: 20130102
  Transmission Date: 20140127
  Serious: Yes (Hospitalization, Other)
  Sender: FDA-Public Use
  Company Number: US-BAXTER-2012BAX027559

PATIENT
  Age: 60 None
  Sex: Female

DRUGS (2)
  1. DIANEAL LOW CALCIUM [Suspect]
     Indication: PERITONEAL DIALYSIS
     Route: 033
  2. DIANEAL LOW CALCIUM [Suspect]
     Indication: PERITONEAL DIALYSIS
     Route: 033

REACTIONS (7)
  - Gastrointestinal haemorrhage [Recovering/Resolving]
  - Diverticulum [Recovering/Resolving]
  - Gastric ulcer haemorrhage [Recovering/Resolving]
  - Gastric ulcer helicobacter [Recovering/Resolving]
  - Gastritis erosive [Recovering/Resolving]
  - Helicobacter infection [Recovering/Resolving]
  - Asthenia [Not Recovered/Not Resolved]
